FAERS Safety Report 10076644 (Version 2)
Quarter: 2014Q2

REPORT INFORMATION
  Report Type: Spontaneous
  Country: US (occurrence: US)
  Receive Date: 20140414
  Receipt Date: 20140604
  Transmission Date: 20141212
  Serious: No
  Sender: FDA-Public Use
  Company Number: US-PFIZER INC-2014103906

PATIENT
  Age: 6 Year
  Sex: Male

DRUGS (6)
  1. QUILLIVANT XR [Suspect]
     Indication: ATTENTION DEFICIT/HYPERACTIVITY DISORDER
     Dosage: 1 ML, DAILY
     Route: 048
  2. QUILLIVANT XR [Suspect]
     Dosage: 3 ML, DAILY
     Route: 048
  3. QUILLIVANT XR [Suspect]
     Dosage: 1.5 ML, Q AM
     Route: 048
     Dates: start: 20140222, end: 20140314
  4. STRATTERA [Suspect]
     Indication: ATTENTION DEFICIT/HYPERACTIVITY DISORDER
     Dosage: 40 MG, DAILY
     Route: 048
     Dates: start: 20140401, end: 20140418
  5. INTUNIV [Concomitant]
     Indication: ATTENTION DEFICIT/HYPERACTIVITY DISORDER
     Dosage: 2 MG, Q AM
     Dates: start: 20140201, end: 20140327
  6. INTUNIV [Concomitant]
     Dosage: 2 MG, Q AM
     Dates: start: 20140419

REACTIONS (2)
  - Tic [Recovered/Resolved]
  - Rash [Recovered/Resolved]
